FAERS Safety Report 5538132-7 (Version None)
Quarter: 2007Q4

REPORT INFORMATION
  Report Type: 
  Country: None (occurrence: None)
  Receive Date: 20071207
  Receipt Date: 20071126
  Transmission Date: 20080405
  Serious: Yes (Other)
  Sender: FDA-Public Use
  Company Number: US-PFIZER INC-2007101308

PATIENT
  Sex: Male

DRUGS (5)
  1. CHANTIX [Suspect]
  2. CORTICOSTEROIDS [Concomitant]
  3. OTHER RESPIRATORY SYSTEM PRODUCTS [Concomitant]
  4. CLARITIN [Concomitant]
  5. ANTIBIOTICS [Concomitant]

REACTIONS (6)
  - CARDIAC DISORDER [None]
  - CARDIOVASCULAR DISORDER [None]
  - DECREASED ACTIVITY [None]
  - DRUG INEFFECTIVE [None]
  - LUNG DISORDER [None]
  - RED BLOOD CELL COUNT INCREASED [None]
